FAERS Safety Report 5735761-2 (Version None)
Quarter: 2008Q2

REPORT INFORMATION
  Report Type: 
  Country: None (occurrence: None)
  Receive Date: 20080513
  Receipt Date: 20080508
  Transmission Date: 20081010
  Serious: Yes (Hospitalization)
  Sender: FDA-Public Use
  Company Number: IT-WYE-G01508708

PATIENT
  Sex: Female

DRUGS (8)
  1. EFFEXOR [Suspect]
     Indication: DEPRESSION
     Route: 048
     Dates: start: 20080105, end: 20080408
  2. HUMALOG [Concomitant]
     Indication: TYPE 1 DIABETES MELLITUS
     Dosage: 44 IU
     Route: 058
  3. LORAZEPAM [Concomitant]
  4. EUTIROX [Concomitant]
  5. CARDURA [Concomitant]
  6. TORVAST [Concomitant]
  7. ATENOLOL [Concomitant]
  8. ASPIRIN [Concomitant]
     Dosage: 1 DOSE
     Route: 048

REACTIONS (1)
  - ACUTE CORONARY SYNDROME [None]
